FAERS Safety Report 4306980-7 (Version None)
Quarter: 2004Q1

REPORT INFORMATION
  Report Type: 
  Country: None (occurrence: None)
  Receive Date: 20040227
  Receipt Date: 20040227
  Transmission Date: 20041129
  Serious: Yes (Hospitalization)
  Sender: FDA-Public Use
  Company Number: None

PATIENT
  Sex: Female
  Weight: 48.5349 kg

DRUGS (8)
  1. LEVAQUIN [Suspect]
     Indication: ASTHMA
     Dosage: 1 TAB DAILY
     Dates: start: 20021024, end: 20021027
  2. PACERONE [Suspect]
     Dosage: PACERONE TABS MAXIMUM 1200MG MG DAILY
     Dates: start: 20021110, end: 20030122
  3. AMIODARONE HCL [Suspect]
     Indication: ATRIAL FIBRILLATION
     Dosage: AMIODARONE  1.1/4 FOR APPROXIMATELY 3 DAYS 300 MG Q 8 HRS
     Dates: start: 20021105
  4. ALBUTEROL [Concomitant]
  5. AEROBID [Concomitant]
  6. PREDNISONE [Concomitant]
  7. CARDIZEM [Concomitant]
  8. MAXZIDE [Concomitant]

REACTIONS (27)
  - ALOPECIA [None]
  - ASTHENIA [None]
  - ATRIAL FIBRILLATION [None]
  - BLOOD PRESSURE INCREASED [None]
  - CONSTIPATION [None]
  - COORDINATION ABNORMAL [None]
  - DECREASED APPETITE [None]
  - DIZZINESS [None]
  - DRUG TOXICITY [None]
  - ELECTROCARDIOGRAM ABNORMAL [None]
  - FLUSHING [None]
  - HAIR COLOUR CHANGES [None]
  - HEADACHE [None]
  - HEART RATE INCREASED [None]
  - HEART RATE IRREGULAR [None]
  - INSOMNIA [None]
  - INTRAOCULAR PRESSURE INCREASED [None]
  - LIMB DISCOMFORT [None]
  - NAUSEA [None]
  - PAIN IN EXTREMITY [None]
  - PRURITUS [None]
  - PULSE PRESSURE DECREASED [None]
  - SALIVARY HYPERSECRETION [None]
  - THYROID FUNCTION TEST ABNORMAL [None]
  - TREMOR [None]
  - VISUAL DISTURBANCE [None]
  - WEIGHT DECREASED [None]
